FAERS Safety Report 8234603-3 (Version None)
Quarter: 2012Q1

REPORT INFORMATION
  Report Type: 
  Country: None (occurrence: None)
  Receive Date: 20120326
  Receipt Date: 20120320
  Transmission Date: 20120608
  Serious: Yes (Hospitalization)
  Sender: FDA-Public Use
  Company Number: US-VERTEX PHARMACEUTICALS INC.-AE-2012-004013

PATIENT
  Sex: Male

DRUGS (4)
  1. INCIVEK [Suspect]
     Indication: HEPATITIS C
     Route: 048
     Dates: start: 20120202
  2. RIBAVIRIN [Concomitant]
     Route: 048
     Dates: start: 20120313
  3. RIBAVIRIN [Concomitant]
     Indication: HEPATITIS C
     Route: 048
     Dates: start: 20120202, end: 20120312
  4. PEGASYS [Concomitant]
     Indication: HEPATITIS C
     Route: 058
     Dates: start: 20120202

REACTIONS (6)
  - ANORECTAL DISCOMFORT [None]
  - LOSS OF CONSCIOUSNESS [None]
  - DYSPNOEA EXERTIONAL [None]
  - PRURITUS [None]
  - ANAEMIA [None]
  - RASH [None]
